FAERS Safety Report 7174827-X (Version None)
Quarter: 2010Q4

REPORT INFORMATION
  Report Type: 
  Country: None (occurrence: None)
  Receive Date: 20101215
  Receipt Date: 20101215
  Transmission Date: 20110411
  Serious: Yes (Hospitalization)
  Sender: FDA-Public Use
  Company Number: None

PATIENT
  Age: 62 Year
  Sex: Male
  Weight: 57 kg

DRUGS (2)
  1. IMMUNE GLOBULIN NOS [Suspect]
     Indication: CHEST PAIN
     Dosage: 40 GM OTHER IV
     Route: 042
     Dates: start: 20101006, end: 20101006
  2. IMMUNE GLOBULIN NOS [Suspect]
     Indication: HYPERTENSION
     Dosage: 40 GM OTHER IV
     Route: 042
     Dates: start: 20101006, end: 20101006

REACTIONS (4)
  - ANGINA PECTORIS [None]
  - HYPERHIDROSIS [None]
  - HYPERTENSION [None]
  - TREMOR [None]
